FAERS Safety Report 15558285 (Version 1)
Quarter: 2018Q4

REPORT INFORMATION
  Report Type: Spontaneous
  Country: US (occurrence: US)
  Receive Date: 20181028
  Receipt Date: 20181028
  Transmission Date: 20190205
  Serious: Yes (Hospitalization)
  Sender: FDA-Public Use
  Company Number: US-TORRENT-00007096

PATIENT
  Age: 55 Year
  Sex: Male

DRUGS (2)
  1. MIRTAZAPINE. [Suspect]
     Active Substance: MIRTAZAPINE
     Indication: MAJOR DEPRESSION
     Dosage: NIGHTLY
  2. CITALOPRAM [Suspect]
     Active Substance: CITALOPRAM HYDROBROMIDE
     Indication: MAJOR DEPRESSION
     Dosage: UNKNOWN

REACTIONS (10)
  - Energy increased [Unknown]
  - Logorrhoea [Unknown]
  - Irritability [Unknown]
  - Confusional state [Recovering/Resolving]
  - Mania [Recovering/Resolving]
  - Condition aggravated [Unknown]
  - Drug ineffective [Unknown]
  - Agitation [Unknown]
  - Insomnia [Unknown]
  - Sexually inappropriate behaviour [Unknown]
